FAERS Safety Report 22725276 (Version 8)
Quarter: 2024Q1

REPORT INFORMATION
  Report Type: Spontaneous
  Country: GB (occurrence: GB)
  Receive Date: 20230719
  Receipt Date: 20240202
  Transmission Date: 20240410
  Serious: Yes (Hospitalization, Other)
  Sender: FDA-Public Use
  Company Number: GB-MYLANLABS-2023M1023113

PATIENT
  Age: 39 Year
  Sex: Female

DRUGS (2)
  1. CLOZARIL [Suspect]
     Active Substance: CLOZAPINE
     Indication: Schizophrenia
     Dosage: UNK
     Route: 048
     Dates: start: 20230125, end: 20230708
  2. CLOZARIL [Suspect]
     Active Substance: CLOZAPINE
     Dosage: UNK
     Route: 048
     Dates: start: 20230908

REACTIONS (9)
  - Immune thrombocytopenia [Unknown]
  - Immune-mediated cytopenia [Unknown]
  - Thrombocytopenia [Not Recovered/Not Resolved]
  - Food refusal [Recovered/Resolved]
  - Malaise [Unknown]
  - Catatonia [Unknown]
  - Weight decreased [Unknown]
  - Therapy interrupted [Recovered/Resolved]
  - Off label use [Unknown]

NARRATIVE: CASE EVENT DATE: 20230227
